FAERS Safety Report 8021537-2 (Version None)
Quarter: 2011Q4

REPORT INFORMATION
  Report Type: 
  Country: None (occurrence: None)
  Receive Date: 20111230
  Receipt Date: 20111219
  Transmission Date: 20120403
  Serious: Yes (Other)
  Sender: FDA-Public Use
  Company Number: JPI-P-018846

PATIENT
  Age: 61 Year
  Sex: Female
  Weight: 112.4921 kg

DRUGS (5)
  1. UNSPECIFIED MEDICATIONS [Concomitant]
  2. XYREM [Suspect]
     Indication: SOMNOLENCE
     Dosage: UNKNOWN, 2 IN 1 D, ORAL, 3 GM (1.5 GM, 2 IN 1 D), ORAL
     Route: 048
     Dates: start: 20110101
  3. XYREM [Suspect]
     Indication: CATAPLEXY
     Dosage: UNKNOWN, 2 IN 1 D, ORAL, 3 GM (1.5 GM, 2 IN 1 D), ORAL
     Route: 048
     Dates: start: 20110101
  4. XYREM [Suspect]
     Indication: SOMNOLENCE
     Dosage: UNKNOWN, 2 IN 1 D, ORAL, 3 GM (1.5 GM, 2 IN 1 D), ORAL
     Route: 048
     Dates: start: 20110103
  5. XYREM [Suspect]
     Indication: CATAPLEXY
     Dosage: UNKNOWN, 2 IN 1 D, ORAL, 3 GM (1.5 GM, 2 IN 1 D), ORAL
     Route: 048
     Dates: start: 20110103

REACTIONS (10)
  - RENAL FAILURE [None]
  - THERAPEUTIC RESPONSE DECREASED [None]
  - HEAD INJURY [None]
  - CONSTIPATION [None]
  - ENURESIS [None]
  - LOSS OF CONSCIOUSNESS [None]
  - OEDEMA PERIPHERAL [None]
  - TREMOR [None]
  - ABNORMAL DREAMS [None]
  - INSOMNIA [None]
